FAERS Safety Report 14158327 (Version 1)
Quarter: 2017Q4

REPORT INFORMATION
  Report Type: Spontaneous
  Country: GB (occurrence: GB)
  Receive Date: 20171103
  Receipt Date: 20171103
  Transmission Date: 20180321
  Serious: Yes (Life-Threatening, Hospitalization, Other)
  Sender: FDA-Public Use
  Company Number: GB-JNJFOC-20171100295

PATIENT
  Sex: Female
  Weight: 66.6 kg

DRUGS (39)
  1. COLESEVELAM HYDROCHLORIDE [Concomitant]
     Active Substance: COLESEVELAM HYDROCHLORIDE
     Route: 065
  2. MEPTAZINOL [Concomitant]
     Active Substance: MEPTAZINOL HYDROCHLORIDE
     Route: 065
  3. POTASSIUM CLAVULANATE [Concomitant]
     Active Substance: CLAVULANATE POTASSIUM
     Route: 065
  4. FUROSEMIDE. [Concomitant]
     Active Substance: FUROSEMIDE
     Route: 065
  5. LIDOCAINE. [Concomitant]
     Active Substance: LIDOCAINE
     Route: 065
  6. METRONIDAZOLE. [Concomitant]
     Active Substance: METRONIDAZOLE
     Route: 065
  7. PREDNISOLONE. [Concomitant]
     Active Substance: PREDNISOLONE
     Route: 065
  8. RANITIDINE. [Concomitant]
     Active Substance: RANITIDINE
     Route: 065
  9. POTASSIUM CHLORIDE. [Concomitant]
     Active Substance: POTASSIUM CHLORIDE
     Route: 065
  10. VANCOMYCIN [Concomitant]
     Active Substance: VANCOMYCIN
     Route: 065
  11. WARFARIN [Concomitant]
     Active Substance: WARFARIN
     Route: 065
  12. COLECALCIFEROL [Concomitant]
     Active Substance: CHOLECALCIFEROL
     Route: 065
  13. POTASSIUM BICARBONATE. [Concomitant]
     Active Substance: POTASSIUM BICARBONATE
     Route: 065
  14. AMOXICILLIN. [Concomitant]
     Active Substance: AMOXICILLIN
     Route: 065
  15. STELARA [Suspect]
     Active Substance: USTEKINUMAB
     Indication: CROHN^S DISEASE
     Route: 042
     Dates: start: 20170919, end: 20170919
  16. COSMOFER [Concomitant]
     Active Substance: IRON DEXTRAN
     Route: 065
  17. HYDROCORTISONE. [Concomitant]
     Active Substance: HYDROCORTISONE
     Route: 065
  18. KONAKION [Concomitant]
     Active Substance: PHYTONADIONE
     Route: 065
  19. LEVOTHYROXINE. [Concomitant]
     Active Substance: LEVOTHYROXINE
     Route: 065
  20. LORAZEPAM. [Concomitant]
     Active Substance: LORAZEPAM
     Route: 065
  21. MIDAZOLAM [Concomitant]
     Active Substance: MIDAZOLAM HYDROCHLORIDE
     Route: 065
  22. ACICLOVIR [Concomitant]
     Active Substance: ACYCLOVIR
     Route: 065
  23. COTRIMOXAZOLE [Concomitant]
     Active Substance: SULFAMETHOXAZOLE\TRIMETHOPRIM
     Route: 065
  24. DALTEPARIN [Concomitant]
     Active Substance: DALTEPARIN
     Route: 065
  25. GENTAMICIN. [Concomitant]
     Active Substance: GENTAMICIN
     Route: 065
  26. ONDANSETRON [Concomitant]
     Active Substance: ONDANSETRON
     Route: 065
  27. XARELTO [Concomitant]
     Active Substance: RIVAROXABAN
     Route: 065
  28. TRANEXAMIC ACID. [Concomitant]
     Active Substance: TRANEXAMIC ACID
     Route: 065
  29. PHOSPHO-SODA [Concomitant]
     Active Substance: SODIUM PHOSPHATE, DIBASIC\SODIUM PHOSPHATE, MONOBASIC
     Route: 065
  30. CALCIUM CARBONATE. [Concomitant]
     Active Substance: CALCIUM CARBONATE
     Route: 065
  31. CALCIUM GLUCONATE. [Concomitant]
     Active Substance: CALCIUM GLUCONATE
     Route: 065
  32. DIGOXIN. [Concomitant]
     Active Substance: DIGOXIN
     Route: 065
  33. IBUPROFEN. [Concomitant]
     Active Substance: IBUPROFEN
     Route: 065
  34. LOPERAMIDE [Concomitant]
     Active Substance: LOPERAMIDE
     Route: 065
  35. METHYLPREDNISOLONE. [Concomitant]
     Active Substance: METHYLPREDNISOLONE
     Route: 065
  36. FOLIC ACID. [Concomitant]
     Active Substance: FOLIC ACID
     Route: 065
  37. HYDROXOCOBALAMIN [Concomitant]
     Active Substance: HYDROXOCOBALAMIN
     Route: 065
  38. OMNIPAQUE [Concomitant]
     Active Substance: IOHEXOL
     Route: 065
  39. PARACETAMOL [Concomitant]
     Active Substance: ACETAMINOPHEN
     Route: 065

REACTIONS (2)
  - Atypical pneumonia [Recovered/Resolved]
  - Dyspnoea [Unknown]

NARRATIVE: CASE EVENT DATE: 201709
